FAERS Safety Report 5865608-5 (Version None)
Quarter: 2008Q3

REPORT INFORMATION
  Report Type: 
  Country: None (occurrence: None)
  Receive Date: 20080829
  Receipt Date: 20080812
  Transmission Date: 20090109
  Serious: No
  Sender: FDA-Public Use
  Company Number: US-ABBOTT-08P-163-0470513-00

PATIENT
  Sex: Female
  Weight: 58.566 kg

DRUGS (8)
  1. SIMCOR [Suspect]
     Indication: HIGH DENSITY LIPOPROTEIN DECREASED
     Dosage: 500/20 MG
     Route: 048
     Dates: start: 20080601, end: 20080601
  2. SIMCOR [Suspect]
     Dosage: 500/20 MG PATIENT CUTTING TABLETS IN HALF
     Dates: start: 20080601, end: 20080811
  3. SIMCOR [Suspect]
     Dosage: 500/20 MG (PATIENT CUTTING TABLETS IN HALF)
     Dates: start: 20080816
  4. HEPAGRISEVIT FORTE-N [Concomitant]
     Indication: DRUG USE FOR UNKNOWN INDICATION
  5. ESTROGENS CONJUGATED [Concomitant]
     Indication: DRUG USE FOR UNKNOWN INDICATION
  6. PAROXETINE HCL [Concomitant]
     Indication: DRUG USE FOR UNKNOWN INDICATION
  7. CALCIUM [Concomitant]
     Indication: DRUG USE FOR UNKNOWN INDICATION
  8. FISH OIL [Concomitant]
     Indication: DRUG USE FOR UNKNOWN INDICATION

REACTIONS (1)
  - MUSCLE SPASMS [None]
